FAERS Safety Report 25239021 (Version 1)
Quarter: 2025Q2

REPORT INFORMATION
  Report Type: Spontaneous
  Country: SG (occurrence: SG)
  Receive Date: 20250425
  Receipt Date: 20250425
  Transmission Date: 20250716
  Serious: Yes (Other)
  Sender: AMGEN
  Company Number: SG-AMGEN-SGPSP2025080321

PATIENT
  Age: 56 Year
  Sex: Female

DRUGS (4)
  1. ETELCALCETIDE [Suspect]
     Active Substance: ETELCALCETIDE
     Indication: Hyperparathyroidism tertiary
     Route: 040
  2. CINACALCET HYDROCHLORIDE [Suspect]
     Active Substance: CINACALCET HYDROCHLORIDE
     Indication: Hyperparathyroidism tertiary
     Route: 065
  3. ALFACALCIDOL [Concomitant]
     Active Substance: ALFACALCIDOL
     Indication: Hyperparathyroidism tertiary
     Route: 040
  4. LANTHANUM [Concomitant]
     Active Substance: LANTHANUM
     Indication: Hyperparathyroidism tertiary
     Route: 048

REACTIONS (6)
  - Calciphylaxis [Unknown]
  - Optic neuropathy [Unknown]
  - Cataract nuclear [Unknown]
  - Cataract cortical [Unknown]
  - Pupillary reflex impaired [Unknown]
  - Off label use [Unknown]
